FAERS Safety Report 21358510 (Version 1)
Quarter: 2022Q3

REPORT INFORMATION
  Report Type: Spontaneous
  Country: US (occurrence: US)
  Receive Date: 20220921
  Receipt Date: 20220921
  Transmission Date: 20221027
  Serious: No
  Sender: FDA-Public Use
  Company Number: US-BIOGEN-2022BI01156274

PATIENT
  Age: 53 Year
  Sex: Female

DRUGS (1)
  1. TECFIDERA [Suspect]
     Active Substance: DIMETHYL FUMARATE
     Indication: Product used for unknown indication
     Route: 050

REACTIONS (6)
  - Product dose omission issue [Unknown]
  - Peripheral swelling [Unknown]
  - Dizziness [Unknown]
  - Headache [Unknown]
  - Pain [Unknown]
  - Dysphonia [Unknown]

NARRATIVE: CASE EVENT DATE: 20220919
